FAERS Safety Report 4316612-X (Version None)
Quarter: 2004Q1

REPORT INFORMATION
  Report Type: 
  Country: None (occurrence: None)
  Receive Date: 20040311
  Receipt Date: 20040227
  Transmission Date: 20041129
  Serious: Yes (Hospitalization)
  Sender: FDA-Public Use
  Company Number: 04P-083-0252201

PATIENT
  Age: 40 Year
  Sex: Male

DRUGS (8)
  1. NIMBEX [Suspect]
     Indication: NEUROMUSCULAR BLOCKADE
     Dosage: MCG/KG/MIN; INTRAVENOUS
     Route: 042
  2. METHYLPREDNISOLONE [Suspect]
     Indication: LUNG DISORDER
     Dosage: 125 MG, 1 IN 12 HR; INTRAVENOUS
     Route: 042
  3. AMBROXOL [Concomitant]
  4. ENOXAPARIN SODIUM [Concomitant]
  5. RANITIDINE [Concomitant]
  6. FUROSEMIDE [Concomitant]
  7. MEREOPENUM [Concomitant]
  8. TEICOPLANIN [Concomitant]

REACTIONS (2)
  - PERIPHERAL MOTOR NEUROPATHY [None]
  - QUADRIPLEGIA [None]
